FAERS Safety Report 5083405-8 (Version None)
Quarter: 2006Q3

REPORT INFORMATION
  Report Type: 
  Country: None (occurrence: None)
  Receive Date: 20060816
  Receipt Date: 20060816
  Transmission Date: 20061208
  Serious: Yes (Hospitalization)
  Sender: FDA-Public Use
  Company Number: None

PATIENT
  Age: 83 Year
  Sex: Male
  Weight: 77 kg

DRUGS (9)
  1. DIPHENHYDRAMINE  50MG/ML  BAXTER [Suspect]
     Indication: INSOMNIA
     Dosage: 50MG ONCE IV
     Route: 042
     Dates: start: 20051121, end: 20051121
  2. PHYSOSTIGMINE [Concomitant]
  3. ESOMEPRAZOLE MAGNESIUM [Concomitant]
  4. DIGOXIN [Concomitant]
  5. HEPARIN [Concomitant]
  6. ASPIRIN [Concomitant]
  7. METOPROLOL TARTRATE [Concomitant]
  8. HALOPERIDOL [Concomitant]
  9. LISINOPRIL [Concomitant]

REACTIONS (2)
  - DELIRIUM [None]
  - MENTAL STATUS CHANGES [None]
